FAERS Safety Report 6465837-6 (Version None)
Quarter: 2009Q4

REPORT INFORMATION
  Report Type: 
  Country: None (occurrence: None)
  Receive Date: 20091127
  Receipt Date: 20091111
  Transmission Date: 20100525
  Serious: Yes (Life-Threatening)
  Sender: FDA-Public Use
  Company Number: 2009AL005438

PATIENT
  Age: 26 Year
  Sex: Male

DRUGS (2)
  1. DOUBLE ANTIBIOTIC OINTMENT (POLYMIXIN B SULFATE-BACITRACIN ZINC) (ALPH [Suspect]
     Indication: SKIN PAPILLOMA
     Dosage: X1;TOP
     Route: 061
     Dates: start: 20090624, end: 20090624
  2. VICODIN ES [Concomitant]

REACTIONS (6)
  - CHEST DISCOMFORT [None]
  - DRUG HYPERSENSITIVITY [None]
  - HYPERTENSION [None]
  - MOTOR DYSFUNCTION [None]
  - TREMOR [None]
  - VISION BLURRED [None]
